FAERS Safety Report 6819939-2 (Version None)
Quarter: 2010Q3

REPORT INFORMATION
  Report Type: 
  Country: None (occurrence: None)
  Receive Date: 20100707
  Receipt Date: 20100628
  Transmission Date: 20110219
  Serious: Yes (Hospitalization)
  Sender: FDA-Public Use
  Company Number: JP-ROCHE-710840

PATIENT
  Age: 57 Year
  Sex: Female
  Weight: 59 kg

DRUGS (6)
  1. TAMIFLU [Suspect]
     Route: 048
     Dates: start: 20091002, end: 20091006
  2. ZYLORIC [Concomitant]
     Route: 048
  3. LIPITOR [Concomitant]
     Route: 048
  4. MICARDIS [Concomitant]
     Route: 048
  5. BASEN [Concomitant]
     Dosage: DRUG REPORTED AS: BASEN OD
     Route: 048
  6. AMARYL [Concomitant]
     Route: 048

REACTIONS (4)
  - OVERDOSE [None]
  - RENAL FAILURE ACUTE [None]
  - SEPSIS [None]
  - URINARY TRACT INFECTION [None]
